FAERS Safety Report 23978226 (Version 5)
Quarter: 2025Q2

REPORT INFORMATION
  Report Type: Spontaneous
  Country: IN (occurrence: IN)
  Receive Date: 20240614
  Receipt Date: 20250609
  Transmission Date: 20250717
  Serious: Yes (Other)
  Sender: PFIZER
  Company Number: IN-PFIZER INC-PV202300045789

PATIENT
  Age: 63 Year
  Sex: Female

DRUGS (7)
  1. PALBOCICLIB [Suspect]
     Active Substance: PALBOCICLIB
     Indication: Breast cancer metastatic
     Dates: start: 202203
  2. PALBOCICLIB [Suspect]
     Active Substance: PALBOCICLIB
     Route: 048
  3. LETROZOLE [Suspect]
     Active Substance: LETROZOLE
     Route: 048
     Dates: start: 202203
  4. LETROZOLE [Suspect]
     Active Substance: LETROZOLE
     Dosage: 2.5 MG, DAILY, 1 TAB DAILY TO CONTINUE FOR 3 MONTHS
     Route: 048
  5. DENOSUMAB [Suspect]
     Active Substance: DENOSUMAB
     Dates: start: 202203
  6. DENOSUMAB [Suspect]
     Active Substance: DENOSUMAB
     Dosage: 120 MG, MONTHLY, TO CONTINUE FOR 3 MONTHS
     Route: 058
  7. CALCIUM CARBONATE\CHOLECALCIFEROL [Concomitant]
     Active Substance: CALCIUM CARBONATE\CHOLECALCIFEROL
     Dosage: 1 DF, DAILY TO CONTINUE FOR 3 MONTHS
     Route: 048

REACTIONS (6)
  - Oral disorder [Unknown]
  - Breast cancer [Unknown]
  - Blood pressure systolic increased [Recovered/Resolved]
  - Body mass index increased [Not Recovered/Not Resolved]
  - Heart rate increased [Recovered/Resolved]
  - Malaise [Unknown]

NARRATIVE: CASE EVENT DATE: 20230214
